FAERS Safety Report 6062666-2 (Version None)
Quarter: 2009Q1

REPORT INFORMATION
  Report Type: 
  Country: None (occurrence: None)
  Receive Date: 20090203
  Receipt Date: 20090126
  Transmission Date: 20090719
  Serious: Yes (Other)
  Sender: FDA-Public Use
  Company Number: DE-AVENTIS-200811544DE

PATIENT
  Age: 26 Year
  Sex: Female
  Weight: 56 kg

DRUGS (1)
  1. TELFAST                            /01314201/ [Suspect]
     Route: 048
     Dates: start: 20080301, end: 20080610

REACTIONS (4)
  - DRUG EXPOSURE DURING PREGNANCY [None]
  - RETAINED PLACENTA OR MEMBRANES [None]
  - RHINITIS [None]
  - ULTRASOUND SCAN ABNORMAL [None]
